FAERS Safety Report 6392239-3 (Version None)
Quarter: 2009Q4

REPORT INFORMATION
  Report Type: 
  Country: None (occurrence: None)
  Receive Date: 20091007
  Receipt Date: 20090928
  Transmission Date: 20100525
  Serious: Yes (Other)
  Sender: FDA-Public Use
  Company Number: JP-ABBOTT-08P-087-0479409-00

PATIENT
  Sex: Male

DRUGS (10)
  1. KALETRA [Suspect]
     Indication: HIV INFECTION
     Dosage: 800/200 MG
     Route: 048
     Dates: start: 20070720
  2. LAMIVUDINE [Suspect]
     Indication: HIV INFECTION
     Route: 048
     Dates: start: 20070720, end: 20080214
  3. ABACAVIR SULFATE [Suspect]
     Indication: HIV INFECTION
     Route: 048
     Dates: start: 20070720, end: 20080214
  4. VALGANCICLOVIR HCL [Suspect]
     Indication: CYTOMEGALOVIRUS VIRAEMIA
     Route: 048
     Dates: start: 20070601, end: 20070621
  5. VALGANCICLOVIR HCL [Suspect]
     Route: 048
     Dates: start: 20070808, end: 20070830
  6. VALGANCICLOVIR HCL [Suspect]
     Route: 048
     Dates: start: 20070831, end: 20080120
  7. AZITHROMYCIN HYDRATE [Suspect]
     Indication: OPPORTUNISTIC INFECTION PROPHYLAXIS
     Route: 048
     Dates: start: 20070811, end: 20070818
  8. SULFAMETHOXAZOLE AND TRIMETHOPRIM [Suspect]
     Indication: ANTIFUNGAL PROPHYLAXIS
     Route: 048
     Dates: start: 20070413, end: 20090313
  9. ABACAVIR SULFATE/LAMIVUDINE [Concomitant]
     Indication: HIV INFECTION
     Route: 048
     Dates: start: 20080215
  10. LOXOPROFEN SODIUM HYDRATE [Concomitant]
     Indication: SCIATICA
     Route: 048
     Dates: start: 20070405

REACTIONS (6)
  - ANOGENITAL WARTS [None]
  - CYTOMEGALOVIRUS VIRAEMIA [None]
  - HYPERLIPIDAEMIA [None]
  - LIVER DISORDER [None]
  - PAIN [None]
  - PYREXIA [None]
